FAERS Safety Report 12198770 (Version 1)
Quarter: 2016Q1

REPORT INFORMATION
  Report Type: Spontaneous
  Country: US (occurrence: None)
  Receive Date: 20160321
  Receipt Date: 20160321
  Transmission Date: 20160526
  Serious: Yes (Other)
  Sender: FDA-Public Use
  Company Number: None

PATIENT
  Age: 55 Year
  Sex: Male
  Weight: 87.54 kg

DRUGS (1)
  1. IBUPROFEN. [Suspect]
     Active Substance: IBUPROFEN
     Indication: MYALGIA
     Route: 048
     Dates: start: 20160314, end: 20160315

REACTIONS (2)
  - Headache [None]
  - Epistaxis [None]

NARRATIVE: CASE EVENT DATE: 20160315
